FAERS Safety Report 11772424 (Version 1)
Quarter: 2015Q4

REPORT INFORMATION
  Report Type: Spontaneous
  Country: US (occurrence: None)
  Receive Date: 20151123
  Receipt Date: 20151123
  Transmission Date: 20160304
  Serious: Yes (Other)
  Sender: FDA-Public Use
  Company Number: 2515444-2015-00004

PATIENT
  Age: 28 Year
  Sex: Female

DRUGS (1)
  1. BANANA BOAT KIDS TEAR FREE CONTINUOUS SPF 50 [Suspect]
     Active Substance: AVOBENZONE\HOMOSALATE\OCTINOXATE\OCTISALATE\OCTOCRYLENE
     Indication: PROPHYLAXIS AGAINST SOLAR RADIATION
     Dosage: TOPICAL; NO DOSAGE LIMIT?10/25/2016 - THERAPY DATE?
     Route: 061

REACTIONS (3)
  - Application site inflammation [None]
  - Asthma [None]
  - Drug administered to patient of inappropriate age [None]

NARRATIVE: CASE EVENT DATE: 20151025
